FAERS Safety Report 5545341-X (Version None)
Quarter: 2007Q4

REPORT INFORMATION
  Report Type: 
  Country: None (occurrence: None)
  Receive Date: 20071206
  Receipt Date: 20071206
  Transmission Date: 20080405
  Serious: Yes (Other)
  Sender: FDA-Public Use
  Company Number: None

PATIENT
  Age: 55 Year
  Sex: Female
  Weight: 128.368 kg

DRUGS (2)
  1. ABILIFY [Suspect]
     Indication: DEPRESSION
     Dosage: TWO TABLETS DAILY PO
     Route: 048
     Dates: start: 20060701, end: 20071201
  2. SEROQUEL [Suspect]
     Indication: DEPRESSION
     Dosage: TWO TABLETS DAILY PO
     Route: 048
     Dates: start: 20041101, end: 20071201

REACTIONS (1)
  - HYPERGLYCAEMIA [None]
